FAERS Safety Report 5216705-9 (Version None)
Quarter: 2007Q1

REPORT INFORMATION
  Report Type: 
  Country: None (occurrence: None)
  Receive Date: 20061130
  Receipt Date: 20060721
  Transmission Date: 20070707
  Serious: Yes (Hospitalization, Other)
  Sender: FDA-Public Use
  Company Number: US200603003240

PATIENT
  Age: 49 Year
  Sex: Female
  Weight: 81.6 kg

DRUGS (3)
  1. ZYPREXA [Suspect]
     Dosage: SEE IMAGE
     Dates: start: 20010601, end: 20030901
  2. ZYPREXA [Suspect]
     Dosage: SEE IMAGE
     Dates: start: 20031001, end: 20060301
  3. PREDNISONE TAB [Concomitant]

REACTIONS (8)
  - BLOOD CHOLESTEROL [None]
  - BLOOD TRIGLYCERIDES INCREASED [None]
  - DIABETES MELLITUS NON-INSULIN-DEPENDENT [None]
  - HYPERGLYCAEMIA [None]
  - INSULIN RESISTANCE [None]
  - METABOLIC DISORDER [None]
  - PANCREATITIS [None]
  - VISION BLURRED [None]
